FAERS Safety Report 6195714-X (Version None)
Quarter: 2009Q2

REPORT INFORMATION
  Report Type: 
  Country: None (occurrence: None)
  Receive Date: 20090520
  Receipt Date: 20071121
  Transmission Date: 20091009
  Serious: Yes (Death, Hospitalization)
  Sender: FDA-Public Use
  Company Number: US-ASTRAZENECA-2006UW21574

PATIENT
  Age: 42 Year
  Sex: Female
  Weight: 84.8 kg

DRUGS (10)
  1. SEROQUEL [Suspect]
     Indication: SLEEP DISORDER
     Route: 048
     Dates: start: 20000101, end: 20040101
  2. SEROQUEL [Suspect]
     Dosage: 50-1800MG
     Route: 048
     Dates: start: 20010807
  3. CLOZARIL [Concomitant]
     Route: 065
  4. ZYPREXA [Concomitant]
     Route: 065
  5. DEPAKOTE [Concomitant]
     Dosage: 500 MG-1500 MG
     Route: 048
  6. FERROUS SULFATE TAB [Concomitant]
     Route: 048
  7. GLUCOPHAGE [Concomitant]
     Route: 048
  8. INDERAL [Concomitant]
     Route: 048
  9. ATIVAN [Concomitant]
     Route: 065
  10. FLUPHENAZINE DECANOATE [Concomitant]
     Route: 030

REACTIONS (8)
  - ANAEMIA [None]
  - BIPOLAR DISORDER [None]
  - CARDIAC FAILURE CONGESTIVE [None]
  - CARDIO-RESPIRATORY ARREST [None]
  - CORONARY ARTERY DISEASE [None]
  - DIABETES MELLITUS [None]
  - PARANOIA [None]
  - SCHIZOPHRENIA [None]
